FAERS Safety Report 11224512 (Version 1)
Quarter: 2015Q2

REPORT INFORMATION
  Report Type: Report from Study
  Country: DE (occurrence: DE)
  Receive Date: 20150629
  Receipt Date: 20150629
  Transmission Date: 20150821
  Serious: Yes (Hospitalization)
  Sender: FDA-Public Use
  Company Number: DE-BIOGENIDEC-2015BI088420

PATIENT
  Age: 62 Year
  Sex: Female

DRUGS (1)
  1. TECFIDERA [Suspect]
     Active Substance: DIMETHYL FUMARATE
     Indication: MULTIPLE SCLEROSIS
     Route: 048
     Dates: start: 20140411

REACTIONS (5)
  - Fall [Recovered/Resolved with Sequelae]
  - Humerus fracture [Recovered/Resolved with Sequelae]
  - Pain [Unknown]
  - Pubis fracture [Recovered/Resolved with Sequelae]
  - Pelvic fracture [Recovered/Resolved with Sequelae]

NARRATIVE: CASE EVENT DATE: 20150525
